FAERS Safety Report 5663197-1 (Version None)
Quarter: 2008Q1

REPORT INFORMATION
  Report Type: 
  Country: None (occurrence: None)
  Receive Date: 20080310
  Receipt Date: 20080226
  Transmission Date: 20080703
  Serious: Yes (Death, Hospitalization)
  Sender: FDA-Public Use
  Company Number: 2008AL001268

PATIENT
  Age: 68 Year
  Sex: Female

DRUGS (14)
  1. PROPRANOLOL HYDROCHLORIDE [Suspect]
     Indication: PORTAL HYPERTENSION
     Dosage: 12.5 MG; TID; PO
     Route: 048
     Dates: start: 20030312, end: 20030409
  2. ALDACTONE [Concomitant]
  3. IBUPROFEN [Concomitant]
  4. NOVAMINSULFON [Concomitant]
  5. AQUAPHOR [Concomitant]
  6. HEPA-MERZ [Concomitant]
  7. METOCLOPRAMIDE [Concomitant]
  8. SUCRALFATE [Concomitant]
  9. NEXIUM [Concomitant]
  10. KONAKION [Concomitant]
  11. CALCILAC [Concomitant]
  12. MILGAMMA [Concomitant]
  13. OMEPRAZOLE [Concomitant]
  14. DICLOFENAC SODIUM [Concomitant]

REACTIONS (1)
  - TOXIC EPIDERMAL NECROLYSIS [None]
